FAERS Safety Report 5080359-5 (Version None)
Quarter: 2006Q3

REPORT INFORMATION
  Report Type: 
  Country: None (occurrence: None)
  Receive Date: 20060814
  Receipt Date: 20060814
  Transmission Date: 20061208
  Serious: Yes (Other)
  Sender: FDA-Public Use
  Company Number: None

PATIENT
  Age: 52 Year
  Sex: Male
  Weight: 102.0593 kg

DRUGS (1)
  1. PREVACID [Suspect]
     Indication: HIATUS HERNIA
     Dosage: 30 MG DAILY PO
     Route: 048
     Dates: start: 20060628, end: 20060809

REACTIONS (2)
  - DYSPEPSIA [None]
  - PHARMACEUTICAL PRODUCT COMPLAINT [None]
